FAERS Safety Report 11377620 (Version 1)
Quarter: 2015Q3

REPORT INFORMATION
  Report Type: Spontaneous
  Country: US (occurrence: US)
  Receive Date: 20150811
  Receipt Date: 20150811
  Transmission Date: 20151125
  Serious: No
  Sender: FDA-Public Use
  Company Number: US-ELI_LILLY_AND_COMPANY-US200904003889

PATIENT
  Sex: Female
  Weight: 90.7 kg

DRUGS (4)
  1. HUMULIN L [Suspect]
     Active Substance: INSULIN HUMAN
     Dosage: 25 U, 2/D
  2. HUMULIN R [Suspect]
     Active Substance: INSULIN HUMAN
     Dosage: 25 U, 2/D
  3. NOVOLOG [Concomitant]
     Active Substance: INSULIN ASPART
     Dates: start: 2003
  4. LEVEMIR [Concomitant]
     Active Substance: INSULIN DETEMIR
     Indication: TYPE 1 DIABETES MELLITUS
     Dates: start: 2003

REACTIONS (2)
  - Weight decreased [Unknown]
  - Weight increased [Unknown]
